FAERS Safety Report 17974428 (Version 1)
Quarter: 2020Q3

REPORT INFORMATION
  Report Type: Report from Study
  Country: CN (occurrence: CN)
  Receive Date: 20200702
  Receipt Date: 20200702
  Transmission Date: 20201103
  Serious: Yes (Other)
  Sender: FDA-Public Use
  Company Number: CN-ROCHE-2631273

PATIENT

DRUGS (5)
  1. BEVACIZUMAB. [Suspect]
     Active Substance: BEVACIZUMAB
     Indication: COLON CANCER METASTATIC
     Dosage: FOR 5 TIMES
     Route: 042
  2. FLUOROURACIL. [Suspect]
     Active Substance: FLUOROURACIL
     Indication: COLON CANCER METASTATIC
     Dosage: GIVEN FOR 22H FROM THE 1ST TO THE 5TH DAY.
     Route: 041
  3. PREGABALINE [Concomitant]
     Active Substance: PREGABALIN
  4. CALCIUM FOLINATE [Suspect]
     Active Substance: LEUCOVORIN CALCIUM
     Indication: COLON CANCER METASTATIC
     Dosage: FOR 2 HOURS FROM THE 1ST TO THE 5TH DAY
     Route: 041
  5. OXALIPLATIN. [Suspect]
     Active Substance: OXALIPLATIN
     Indication: COLON CANCER METASTATIC
     Dosage: ON THE 1ST DAY
     Route: 041

REACTIONS (8)
  - Nausea [Unknown]
  - Venous thrombosis [Unknown]
  - Haematuria [Unknown]
  - Haematemesis [Unknown]
  - Vomiting [Unknown]
  - Granulocyte count decreased [Unknown]
  - Hypertension [Unknown]
  - Nephropathy toxic [Unknown]
